FAERS Safety Report 8364602-2 (Version None)
Quarter: 2012Q2

REPORT INFORMATION
  Report Type: 
  Country: None (occurrence: None)
  Receive Date: 20120516
  Receipt Date: 20120508
  Transmission Date: 20120825
  Serious: Yes (Hospitalization)
  Sender: FDA-Public Use
  Company Number: US-ASTRAZENECA-2012SE07330

PATIENT
  Age: 79 Year
  Sex: Female
  Weight: 86.2 kg

DRUGS (7)
  1. NEXIUM [Suspect]
     Indication: GASTROOESOPHAGEAL REFLUX DISEASE
     Route: 048
     Dates: end: 20110801
  2. TOPROL-XL [Concomitant]
  3. CLINDAMYCIN [Concomitant]
  4. NEXIUM [Suspect]
     Route: 048
  5. CEREBREX [Concomitant]
  6. HYDROCHLOROTHIAZIDE [Concomitant]
  7. DIAZEPAM [Concomitant]

REACTIONS (7)
  - GASTROINTESTINAL ULCER [None]
  - COLONIC POLYP [None]
  - GASTROOESOPHAGEAL REFLUX DISEASE [None]
  - MALAISE [None]
  - ABDOMINAL PAIN UPPER [None]
  - GASTRIC POLYPS [None]
  - INTENTIONAL DRUG MISUSE [None]
